FAERS Safety Report 12931267 (Version 2)
Quarter: 2019Q2

REPORT INFORMATION
  Report Type: Spontaneous
  Country: US (occurrence: US)
  Receive Date: 20161110
  Receipt Date: 20190510
  Transmission Date: 20190711
  Serious: No
  Sender: FDA-Public Use
  Company Number: US-JAZZ-2016-US-018059

PATIENT
  Sex: Female

DRUGS (39)
  1. KRILL OIL [Concomitant]
     Active Substance: DIETARY SUPPLEMENT
  2. NIFEDIPINE. [Concomitant]
     Active Substance: NIFEDIPINE
  3. LOPERAMIDE [Concomitant]
     Active Substance: LOPERAMIDE
  4. ZINC GLUCONATE [Concomitant]
     Active Substance: ZINC GLUCONATE
  5. ABILIFY [Concomitant]
     Active Substance: ARIPIPRAZOLE
  6. ADVAIR HFA [Concomitant]
     Active Substance: FLUTICASONE PROPIONATE\SALMETEROL XINAFOATE
  7. LEVOTHYROXINE. [Concomitant]
     Active Substance: LEVOTHYROXINE
  8. MOMETASONE FUROATE. [Concomitant]
     Active Substance: MOMETASONE FUROATE
  9. PROPRANOLOL ER [Concomitant]
     Active Substance: PROPRANOLOL HYDROCHLORIDE
  10. QNASL [Concomitant]
     Active Substance: BECLOMETHASONE DIPROPIONATE
  11. XYREM [Suspect]
     Active Substance: SODIUM OXYBATE
     Indication: CATAPLEXY
  12. ADDERALL XR [Concomitant]
     Active Substance: AMPHETAMINE ASPARTATE\AMPHETAMINE SULFATE\DEXTROAMPHETAMINE SACCHARATE\DEXTROAMPHETAMINE SULFATE
  13. IBUPROFEN. [Concomitant]
     Active Substance: IBUPROFEN
  14. VITAMIN B12 [Concomitant]
     Active Substance: CYANOCOBALAMIN
  15. FEXOFENADINE HCL [Concomitant]
     Active Substance: FEXOFENADINE HYDROCHLORIDE
  16. DIPHENHYDRAMINE HYDROCHLORIDE. [Concomitant]
     Active Substance: DIPHENHYDRAMINE HYDROCHLORIDE
  17. BIOTIN [Concomitant]
     Active Substance: BIOTIN
  18. CALCIUM [Concomitant]
     Active Substance: CALCIUM
  19. QVAR [Concomitant]
     Active Substance: BECLOMETHASONE DIPROPIONATE
  20. SINGULAIR [Concomitant]
     Active Substance: MONTELUKAST SODIUM
  21. TRAVATAN Z [Concomitant]
     Active Substance: TRAVOPROST
  22. TIZANIDINE HCL [Concomitant]
     Active Substance: TIZANIDINE HYDROCHLORIDE
  23. SPIRIVA [Concomitant]
     Active Substance: TIOTROPIUM BROMIDE MONOHYDRATE
  24. FUROSEMIDE. [Concomitant]
     Active Substance: FUROSEMIDE
  25. ZYRTEC [Concomitant]
     Active Substance: CETIRIZINE HYDROCHLORIDE
  26. CYANOCOBALAMIN. [Concomitant]
     Active Substance: CYANOCOBALAMIN
  27. COENZYME Q10 [Concomitant]
     Active Substance: UBIDECARENONE
  28. LANSOPRAZOLE DR [Concomitant]
     Active Substance: LANSOPRAZOLE
  29. LEVOCETIRIZINE [Concomitant]
     Active Substance: LEVOCETIRIZINE
  30. POTASSIUM CL ER [Concomitant]
     Active Substance: POTASSIUM CHLORIDE
  31. PROAIR HFA [Concomitant]
     Active Substance: ALBUTEROL SULFATE
  32. XYREM [Suspect]
     Active Substance: SODIUM OXYBATE
     Indication: NARCOLEPSY
     Dosage: 4.5 G, BID
     Route: 048
     Dates: start: 201307
  33. CLONAZEPAM. [Concomitant]
     Active Substance: CLONAZEPAM
  34. FERROUS SULFATE. [Concomitant]
     Active Substance: FERROUS SULFATE
  35. FOLIC ACID. [Concomitant]
     Active Substance: FOLIC ACID
  36. PRISTIQ EXTENDED-RELEASE [Concomitant]
     Active Substance: DESVENLAFAXINE SUCCINATE
  37. VITAMIN D3 [Concomitant]
     Active Substance: CHOLECALCIFEROL
  38. CALCIUM CITRATE PLUS [Concomitant]
  39. LOSARTAN POTASSIUM. [Concomitant]
     Active Substance: LOSARTAN POTASSIUM

REACTIONS (1)
  - Asthma [Not Recovered/Not Resolved]
